FAERS Safety Report 17694222 (Version 2)
Quarter: 2020Q2

REPORT INFORMATION
  Report Type: Report from Study
  Country: US (occurrence: US)
  Receive Date: 20200422
  Receipt Date: 20200506
  Transmission Date: 20200714
  Serious: Yes (Death, Hospitalization, Other)
  Sender: FDA-Public Use
  Company Number: US-GILEAD-2020-0460470

PATIENT
  Age: 38 Year
  Sex: Female

DRUGS (2)
  1. AMBRISENTAN [Suspect]
     Active Substance: AMBRISENTAN
     Indication: PULMONARY ARTERIAL HYPERTENSION
     Dosage: 10 MG, QD
     Route: 065
     Dates: start: 20190420
  2. TADALAFIL. [Concomitant]
     Active Substance: TADALAFIL
     Dosage: UNK

REACTIONS (2)
  - Death [Fatal]
  - Coronavirus infection [Not Recovered/Not Resolved]
